FAERS Safety Report 15609137 (Version 1)
Quarter: 2018Q4

REPORT INFORMATION
  Report Type: Spontaneous
  Country: US (occurrence: US)
  Receive Date: 20181112
  Receipt Date: 20181112
  Transmission Date: 20190205
  Serious: No
  Sender: FDA-Public Use
  Company Number: None

PATIENT
  Age: 58 Year
  Sex: Female
  Weight: 110.25 kg

DRUGS (1)
  1. AIMOVIG [Suspect]
     Active Substance: ERENUMAB-AOOE
     Indication: MIGRAINE
     Dosage: ?          QUANTITY:1 INJECTION(S);OTHER FREQUENCY:MONTHLY;OTHER ROUTE:SELF INJECTED INTO RIGHT THIGH?
     Dates: start: 20181015, end: 20181016

REACTIONS (18)
  - Facial pain [None]
  - Aphasia [None]
  - Clumsiness [None]
  - Dyspnoea [None]
  - Hyperacusis [None]
  - Paraesthesia oral [None]
  - Throat clearing [None]
  - Headache [None]
  - Visual impairment [None]
  - Migraine [None]
  - Fatigue [None]
  - Nausea [None]
  - Muscle tightness [None]
  - Neck pain [None]
  - Photophobia [None]
  - Pulmonary congestion [None]
  - Throat tightness [None]
  - Feeling abnormal [None]

NARRATIVE: CASE EVENT DATE: 20181031
